FAERS Safety Report 19084600 (Version 1)
Quarter: 2021Q2

REPORT INFORMATION
  Report Type: Spontaneous
  Country: US (occurrence: US)
  Receive Date: 20210401
  Receipt Date: 20210401
  Transmission Date: 20210717
  Serious: No
  Sender: FDA-Public Use
  Company Number: US-IBSA PHARMA-2019-IBS-00784

PATIENT
  Age: 74 Year

DRUGS (4)
  1. FLECTOR [Suspect]
     Active Substance: DICLOFENAC EPOLAMINE
     Indication: INFLAMMATION
     Dosage: ONE PATCH TO CLEAN DRY AREA OF SKIN TWICE DAILY
     Route: 061
     Dates: start: 20200825
  2. AMLODIPINE [Suspect]
     Active Substance: AMLODIPINE BESYLATE
     Indication: HYPERTENSION
  3. LIPITOR [Suspect]
     Active Substance: ATORVASTATIN CALCIUM
     Indication: BLOOD CHOLESTEROL ABNORMAL
  4. FLECTOR [Suspect]
     Active Substance: DICLOFENAC EPOLAMINE
     Indication: PAIN
     Dosage: 1 PATCH AS NEEDED
     Route: 061

REACTIONS (7)
  - Product use in unapproved indication [Unknown]
  - Gait disturbance [Unknown]
  - Off label use [Unknown]
  - Arthralgia [Recovering/Resolving]
  - Body height decreased [Unknown]
  - Weight increased [Unknown]
  - Feeling abnormal [Unknown]
